FAERS Safety Report 8118974-4 (Version None)
Quarter: 2012Q1

REPORT INFORMATION
  Report Type: 
  Country: None (occurrence: None)
  Receive Date: 20120207
  Receipt Date: 20120131
  Transmission Date: 20120608
  Serious: Yes (Hospitalization)
  Sender: FDA-Public Use
  Company Number: NZ-ASTRAZENECA-2012SE06211

PATIENT
  Age: 58 Year
  Sex: Female

DRUGS (1)
  1. BRILINTA [Suspect]
     Route: 048
     Dates: start: 20111223, end: 20111225

REACTIONS (3)
  - RASH [None]
  - DRUG HYPERSENSITIVITY [None]
  - SWELLING FACE [None]
